FAERS Safety Report 15317084 (Version 1)
Quarter: 2018Q3

REPORT INFORMATION
  Report Type: Spontaneous
  Country: US (occurrence: US)
  Receive Date: 20180816
  Receipt Date: 20180816
  Transmission Date: 20181010
  Serious: No
  Sender: FDA-Public Use
  Company Number: None

PATIENT
  Age: 28 Year
  Sex: Male

DRUGS (1)
  1. TRIUMEQ [Suspect]
     Active Substance: ABACAVIR SULFATE\DOLUTEGRAVIR SODIUM\LAMIVUDINE
     Indication: HEPATITIS B
     Route: 048
     Dates: start: 20180725

REACTIONS (6)
  - Confusional state [None]
  - Nausea [None]
  - Mental status changes [None]
  - Diarrhoea [None]
  - Depressed level of consciousness [None]
  - Vomiting [None]

NARRATIVE: CASE EVENT DATE: 20180725
